FAERS Safety Report 9191047 (Version 1)
Quarter: 2013Q1

REPORT INFORMATION
  Report Type: Spontaneous
  Country: US (occurrence: US)
  Receive Date: 20130326
  Receipt Date: 20130326
  Transmission Date: 20140127
  Serious: No
  Sender: FDA-Public Use
  Company Number: US-009507513-1303USA012718

PATIENT
  Sex: Male

DRUGS (1)
  1. MIRALAX [Suspect]
     Indication: PRODUCT USED FOR UNKNOWN INDICATION
     Dosage: 7.5 G, UNKNOWN
     Route: 048
     Dates: end: 20130216

REACTIONS (4)
  - Flatulence [Unknown]
  - Abdominal distension [Unknown]
  - Incorrect drug administration duration [Unknown]
  - Underdose [Unknown]
